FAERS Safety Report 4569418-0 (Version None)
Quarter: 2005Q1

REPORT INFORMATION
  Report Type: 
  Country: None (occurrence: None)
  Receive Date: 20050203
  Receipt Date: 20050120
  Transmission Date: 20050727
  Serious: Yes (Hospitalization)
  Sender: FDA-Public Use
  Company Number: NL-JNJFOC-20050106339

PATIENT
  Sex: Male

DRUGS (4)
  1. CORDIUM [Suspect]
     Route: 049
  2. CORDIUM [Suspect]
     Indication: ATRIAL FIBRILLATION
     Route: 049
  3. BISOPROLOL FUMARATE [Suspect]
     Indication: ATRIAL FIBRILLATION
     Route: 049
  4. WARFARIN [Suspect]
     Indication: PROPHYLAXIS
     Route: 049

REACTIONS (1)
  - INTERSTITIAL LUNG DISEASE [None]
